FAERS Safety Report 8763448 (Version 3)
Quarter: 2013Q1

REPORT INFORMATION
  Report Type: Report from Study
  Country: JP (occurrence: JP)
  Receive Date: 20120831
  Receipt Date: 20130218
  Transmission Date: 20140127
  Serious: Yes (Other)
  Sender: FDA-Public Use
  Company Number: JP-009507513-2012SP036756

PATIENT
  Age: 67 Year
  Sex: Male
  Weight: 64 kg

DRUGS (7)
  1. PEGINTRON [Suspect]
     Indication: CHRONIC HEPATITIS C
     Dosage: 1.5 MICROGRAM PER KILOGRAM, QW
     Route: 058
     Dates: start: 20120501
  2. REBETOL [Suspect]
     Indication: CHRONIC HEPATITIS C
     Dosage: 800 MG, QD
     Route: 048
     Dates: start: 20120501, end: 20120514
  3. REBETOL [Suspect]
     Dosage: 400 MG, QD
     Route: 048
     Dates: start: 20120515
  4. TELAVIC [Suspect]
     Indication: CHRONIC HEPATITIS C
     Dosage: 1500 MG, QD
     Route: 048
     Dates: start: 20120501, end: 20120723
  5. LORFENAMIN [Concomitant]
     Indication: PROPHYLAXIS
     Dosage: 60 MG, PRN, FORMULATION : POR
     Route: 048
     Dates: start: 20120503, end: 20120522
  6. LORFENAMIN [Concomitant]
     Indication: PYREXIA
     Dosage: 60 MG DAILY AS NEEDED, FORMULATION POR
     Route: 048
     Dates: start: 20120503
  7. TAKEPRON [Concomitant]
     Indication: PROPHYLAXIS
     Dosage: 15 MG, QD
     Route: 048
     Dates: start: 20120608

REACTIONS (6)
  - Hyperuricaemia [Recovering/Resolving]
  - Platelet count decreased [Recovered/Resolved]
  - Platelet count decreased [Recovered/Resolved]
  - Anaemia [Recovered/Resolved]
  - Rash [Recovering/Resolving]
  - Renal impairment [Recovering/Resolving]
